FAERS Safety Report 13158960 (Version 1)
Quarter: 2017Q1

REPORT INFORMATION
  Report Type: Other
  Country: NO (occurrence: NO)
  Receive Date: 20170127
  Receipt Date: 20170127
  Transmission Date: 20170428
  Serious: Yes (Life-Threatening, Hospitalization, Disabling, Other)
  Sender: FDA-Public Use
  Company Number: NO-ASTELLAS-2017US003063

PATIENT
  Age: 58 Year
  Sex: Male

DRUGS (4)
  1. BETMIGA [Suspect]
     Active Substance: MIRABEGRON
     Route: 065
     Dates: start: 201607, end: 20161001
  2. B COMPLEX                          /00212701/ [Concomitant]
     Active Substance: NIACINAMIDE\PYRIDOXINE\RIBOFLAVIN\THIAMINE
     Indication: SUPPLEMENTATION THERAPY
     Dosage: UNK UNK, UNKNOWN FREQ.
     Route: 065
  3. BETMIGA [Suspect]
     Active Substance: MIRABEGRON
     Indication: HYPERTONIC BLADDER
     Dosage: 50 MG, ONCE DAILY (STOPPED MEDICATION FROM JUNE TO JULY )
     Route: 065
     Dates: start: 20160215, end: 201606
  4. VITAMIN D                          /00107901/ [Concomitant]
     Active Substance: ERGOCALCIFEROL
     Indication: SUPPLEMENTATION THERAPY
     Dosage: UNK UNK, UNKNOWN FREQ.
     Route: 065

REACTIONS (5)
  - Eyelid oedema [Recovered/Resolved]
  - Headache [Recovered/Resolved]
  - Bladder pain [Recovering/Resolving]
  - Renal cancer [Not Recovered/Not Resolved]
  - Bladder irritation [Recovering/Resolving]

NARRATIVE: CASE EVENT DATE: 20160915
